FAERS Safety Report 5051211-6 (Version None)
Quarter: 2006Q3

REPORT INFORMATION
  Report Type: 
  Country: None (occurrence: None)
  Receive Date: 20060714
  Receipt Date: 20060707
  Transmission Date: 20061208
  Serious: Yes (Other)
  Sender: FDA-Public Use
  Company Number: US-AVENTIS-200615692US

PATIENT
  Sex: Female

DRUGS (4)
  1. CLOMID [Suspect]
     Dates: start: 20060601
  2. CLOMID [Suspect]
     Dates: start: 20060701
  3. PROGESTERONE [Concomitant]
     Dosage: DOSE: UNK
  4. ESTROGENS SOL/INJ [Concomitant]
     Dosage: DOSE: UNK

REACTIONS (4)
  - ALANINE AMINOTRANSFERASE INCREASED [None]
  - ASPARTATE AMINOTRANSFERASE INCREASED [None]
  - BLOOD BILIRUBIN INCREASED [None]
  - HEPATIC FAILURE [None]
